FAERS Safety Report 4841464-9 (Version None)
Quarter: 2005Q4

REPORT INFORMATION
  Report Type: 
  Country: None (occurrence: None)
  Receive Date: 20051130
  Receipt Date: 20050801
  Transmission Date: 20060501
  Serious: No
  Sender: FDA-Public Use
  Company Number: US-GLAXOSMITHKLINE-A0568497A

PATIENT
  Sex: Male

DRUGS (7)
  1. WELLBUTRIN XL [Suspect]
     Indication: DRUG USE FOR UNKNOWN INDICATION
     Dosage: 150MG PER DAY
     Route: 048
     Dates: start: 20050718
  2. QUINAPRIL [Concomitant]
  3. METOPROLOL [Concomitant]
  4. METFORMIN [Concomitant]
  5. GLIPIZIDE [Concomitant]
  6. ASPIRIN [Concomitant]
  7. PLAVIX [Concomitant]

REACTIONS (1)
  - IMPATIENCE [None]
